FAERS Safety Report 7491247-9 (Version None)
Quarter: 2011Q2

REPORT INFORMATION
  Report Type: 
  Country: None (occurrence: None)
  Receive Date: 20110519
  Receipt Date: 20110510
  Transmission Date: 20111010
  Serious: Yes (Hospitalization)
  Sender: FDA-Public Use
  Company Number: A0889210A

PATIENT
  Age: 67 Year
  Sex: Male

DRUGS (4)
  1. GLYBURIDE [Concomitant]
  2. VICODIN [Concomitant]
  3. LOVASTATIN [Concomitant]
  4. AVANDIA [Suspect]
     Dosage: 4MG PER DAY
     Route: 048
     Dates: start: 20090901, end: 20100201

REACTIONS (3)
  - CARDIOVASCULAR DISORDER [None]
  - CARDIAC FAILURE CONGESTIVE [None]
  - ELECTROCARDIOGRAM QT PROLONGED [None]
